FAERS Safety Report 8468150-0 (Version None)
Quarter: 2012Q2

REPORT INFORMATION
  Report Type: 
  Country: None (occurrence: None)
  Receive Date: 20120626
  Receipt Date: 20120620
  Transmission Date: 20120825
  Serious: Yes (Hospitalization, Other)
  Sender: FDA-Public Use
  Company Number: US-MERCK-1103USA00998

PATIENT
  Age: 64 Year
  Sex: Female

DRUGS (8)
  1. PLAVIX [Concomitant]
     Indication: THROMBOSIS
     Route: 048
     Dates: start: 20010101
  2. PRILOSEC [Concomitant]
     Indication: GASTROOESOPHAGEAL REFLUX DISEASE
     Route: 048
     Dates: start: 19960101
  3. [THERAPY UNSPECIFIED] [Concomitant]
     Route: 065
  4. ASPIRIN [Concomitant]
     Indication: ANTICOAGULANT THERAPY
     Route: 048
     Dates: start: 19910101
  5. LIPITOR [Concomitant]
     Indication: BLOOD CHOLESTEROL
     Route: 048
     Dates: start: 20010101
  6. FOSAMAX [Suspect]
     Indication: OSTEOPOROSIS
     Route: 048
     Dates: start: 20030701, end: 20080101
  7. TOPROL-XL [Concomitant]
     Indication: BLOOD PRESSURE
     Route: 048
     Dates: start: 20010101
  8. FOSAMAX [Suspect]
     Route: 048
     Dates: start: 20080318

REACTIONS (39)
  - HIP FRACTURE [None]
  - RADIUS FRACTURE [None]
  - ABSCESS [None]
  - BONE DISORDER [None]
  - OSTEOMYELITIS [None]
  - OSTEITIS [None]
  - FALL [None]
  - ARTHROPATHY [None]
  - HYPERSENSITIVITY [None]
  - RHEUMATOID ARTHRITIS [None]
  - ORAL INFECTION [None]
  - OSTEONECROSIS OF JAW [None]
  - CONSTIPATION [None]
  - GASTRIC ULCER [None]
  - WRIST FRACTURE [None]
  - JOINT DISLOCATION [None]
  - DRUG HYPERSENSITIVITY [None]
  - BLOOD IRON DECREASED [None]
  - ARTERIOSCLEROSIS CORONARY ARTERY [None]
  - JAW DISORDER [None]
  - FISTULA DISCHARGE [None]
  - TOOTH DISORDER [None]
  - AMNESIA [None]
  - CONCUSSION [None]
  - CEREBROVASCULAR ACCIDENT [None]
  - ARTHRITIS [None]
  - LYMPHADENOPATHY [None]
  - IMPAIRED HEALING [None]
  - DRY MOUTH [None]
  - PAIN [None]
  - ADVERSE EVENT [None]
  - FRACTURE [None]
  - PANIC ATTACK [None]
  - GAIT DISTURBANCE [None]
  - LIPID METABOLISM DISORDER [None]
  - SLEEP DISORDER [None]
  - OSTEOARTHRITIS [None]
  - DEPRESSION [None]
  - BRONCHITIS [None]
